FAERS Safety Report 10754292 (Version 4)
Quarter: 2015Q1

REPORT INFORMATION
  Report Type: Spontaneous
  Country: DE (occurrence: DE)
  Receive Date: 20150202
  Receipt Date: 20150331
  Transmission Date: 20150721
  Serious: Yes (Death, Hospitalization)
  Sender: FDA-Public Use
  Company Number: DE-JNJFOC-20150107949

PATIENT
  Age: 74 Year
  Sex: Male
  Weight: 75 kg

DRUGS (2)
  1. IMBRUVICA [Suspect]
     Active Substance: IBRUTINIB
     Indication: CHRONIC LYMPHOCYTIC LEUKAEMIA
     Route: 048
     Dates: start: 20141028, end: 20150108
  2. TORASEMID [Concomitant]
     Active Substance: TORSEMIDE

REACTIONS (6)
  - Death [Fatal]
  - Cardiac failure [Unknown]
  - Protein total abnormal [Unknown]
  - Rash [Unknown]
  - Myocardial infarction [Fatal]
  - Cardiac failure [Unknown]

NARRATIVE: CASE EVENT DATE: 20141127
